FAERS Safety Report 9359753 (Version 5)
Quarter: 2013Q3

REPORT INFORMATION
  Report Type: Spontaneous
  Country: IT (occurrence: IT)
  Receive Date: 20130621
  Receipt Date: 20130918
  Transmission Date: 20140515
  Serious: Yes (Other)
  Sender: FDA-Public Use
  Company Number: IT-ROCHE-1239421

PATIENT
  Age: 43 Year
  Sex: Male

DRUGS (5)
  1. VALGANCICLOVIR [Suspect]
     Indication: CYTOMEGALOVIRUS INFECTION
     Route: 065
     Dates: start: 20130601, end: 20130725
  2. VALGANCICLOVIR [Suspect]
     Dosage: DRUG RESTARTED
     Route: 065
  3. TACROLIMUS [Concomitant]
  4. MYCOPHENOLATE MOFETIL [Concomitant]
  5. THYMOGLOBULINE [Concomitant]

REACTIONS (2)
  - Renal failure acute [Recovering/Resolving]
  - Renal tubular necrosis [Unknown]
